FAERS Safety Report 7953775-9 (Version None)
Quarter: 2011Q4

REPORT INFORMATION
  Report Type: 
  Country: None (occurrence: None)
  Receive Date: 20111202
  Receipt Date: 20111129
  Transmission Date: 20120403
  Serious: Yes (Hospitalization, Other)
  Sender: FDA-Public Use
  Company Number: US-PFIZER INC-2011221385

PATIENT
  Sex: Female

DRUGS (2)
  1. CHANTIX [Suspect]
     Indication: SMOKING CESSATION THERAPY
     Dosage: UNK
     Dates: start: 20080305, end: 20080701
  2. CHANTIX [Suspect]
     Dosage: UNK
     Dates: start: 20090101, end: 20090101

REACTIONS (6)
  - MENTAL DISORDER [None]
  - INTENTIONAL OVERDOSE [None]
  - AMNESIA [None]
  - DEPRESSION [None]
  - SUICIDE ATTEMPT [None]
  - ANXIETY [None]
